FAERS Safety Report 9384104 (Version 2)
Quarter: 2013Q3

REPORT INFORMATION
  Report Type: Spontaneous
  Country: IT (occurrence: IT)
  Receive Date: 20130705
  Receipt Date: 20130712
  Transmission Date: 20140515
  Serious: Yes (Other)
  Sender: FDA-Public Use
  Company Number: IT-BRISTOL-MYERS SQUIBB COMPANY-19046556

PATIENT
  Age: 88 Year
  Sex: Male

DRUGS (1)
  1. SPRYCEL [Suspect]
     Dates: start: 201001

REACTIONS (2)
  - Colorectal cancer [Unknown]
  - Pleural effusion [Unknown]
